FAERS Safety Report 4276642-3 (Version None)
Quarter: 2004Q1

REPORT INFORMATION
  Report Type: 
  Country: None (occurrence: None)
  Receive Date: 20040120
  Receipt Date: 20040106
  Transmission Date: 20041129
  Serious: Yes (Life-Threatening, Other)
  Sender: FDA-Public Use
  Company Number: HQWYE415616JAN04

PATIENT
  Sex: Female

DRUGS (5)
  1. PREMARIN [Suspect]
  2. PHENTERMINE [Suspect]
  3. PONDIMIN [Suspect]
     Dosage: ORAL
     Route: 048
  4. PREMPRO [Suspect]
     Dosage: ORAL
     Route: 048
  5. REDUX [Suspect]

REACTIONS (3)
  - AORTIC STENOSIS [None]
  - AORTIC VALVE INCOMPETENCE [None]
  - MITRAL VALVE INCOMPETENCE [None]
